FAERS Safety Report 7636504-8 (Version None)
Quarter: 2011Q3

REPORT INFORMATION
  Report Type: 
  Country: None (occurrence: None)
  Receive Date: 20110726
  Receipt Date: 20110725
  Transmission Date: 20111222
  Serious: Yes (Death)
  Sender: FDA-Public Use
  Company Number: US-PFIZER INC-2011168601

PATIENT
  Age: 14 Year
  Sex: Female

DRUGS (2)
  1. XANAX [Suspect]
  2. OXYCODONE HCL [Suspect]

REACTIONS (2)
  - TOXICITY TO VARIOUS AGENTS [None]
  - ACCIDENTAL POISONING [None]
